FAERS Safety Report 7821805-0 (Version None)
Quarter: 2011Q4

REPORT INFORMATION
  Report Type: 
  Country: None (occurrence: None)
  Receive Date: 20111018
  Receipt Date: 20110608
  Transmission Date: 20120403
  Serious: No
  Sender: FDA-Public Use
  Company Number: IE-ASTRAZENECA-2011SE24590

PATIENT
  Age: 74 Year
  Sex: Male

DRUGS (1)
  1. SYMBICORT [Suspect]
     Dosage: 160/4.5 MICROGRAMS , TWO TIMES A DAY
     Route: 055
     Dates: start: 20100101

REACTIONS (2)
  - DYSPNOEA [None]
  - DRUG DOSE OMISSION [None]
